FAERS Safety Report 10289931 (Version 1)
Quarter: 2014Q3

REPORT INFORMATION
  Report Type: Spontaneous
  Country: CZ (occurrence: CZ)
  Receive Date: 20140710
  Receipt Date: 20140710
  Transmission Date: 20150326
  Serious: Yes (Hospitalization, Other)
  Sender: FDA-Public Use
  Company Number: CZ-MYLANLABS-2014S1015671

PATIENT
  Age: 33 Year
  Sex: Female

DRUGS (7)
  1. ZYPREXA [Suspect]
     Active Substance: OLANZAPINE
     Indication: DEPRESSION
     Route: 065
  2. ALPRAZOLAM. [Suspect]
     Active Substance: ALPRAZOLAM
     Indication: SUICIDE ATTEMPT
     Route: 065
  3. CLONAZEPAM. [Suspect]
     Active Substance: CLONAZEPAM
     Indication: SUICIDE ATTEMPT
     Route: 065
  4. ALPRAZOLAM. [Suspect]
     Active Substance: ALPRAZOLAM
     Indication: OFF LABEL USE
     Route: 065
  5. ZOLPIDEM [Suspect]
     Active Substance: ZOLPIDEM\ZOLPIDEM TARTRATE
     Indication: SUICIDE ATTEMPT
     Route: 065
  6. CLONAZEPAM. [Suspect]
     Active Substance: CLONAZEPAM
     Indication: OFF LABEL USE
     Route: 065
  7. ZOLPIDEM [Suspect]
     Active Substance: ZOLPIDEM\ZOLPIDEM TARTRATE
     Indication: OFF LABEL USE
     Route: 065

REACTIONS (4)
  - Hypoglycaemia [Recovered/Resolved]
  - Toxicity to various agents [Recovering/Resolving]
  - Loss of consciousness [Recovered/Resolved]
  - Suicide attempt [Recovered/Resolved]
